FAERS Safety Report 8928531 (Version 1)
Quarter: 2012Q4

REPORT INFORMATION
  Report Type: 
  Country: GB (occurrence: GB)
  Receive Date: 20121128
  Receipt Date: 20121128
  Transmission Date: 20130627
  Serious: Yes (Other)
  Sender: FDA-Public Use
  Company Number: GB-SANOFI-AVENTIS-2012SA086821

PATIENT
  Sex: Male

DRUGS (3)
  1. DOCETAXEL [Suspect]
     Indication: PROSTATE CANCER METASTATIC
     Dosage: form: given as 1 hour infusion
     Route: 065
  2. DEXAMETHASONE [Concomitant]
     Indication: PROPHYLAXIS
  3. PREDNISOLONE [Concomitant]
     Route: 048

REACTIONS (1)
  - Depression [Unknown]
